FAERS Safety Report 24712450 (Version 1)
Quarter: 2024Q4

REPORT INFORMATION
  Report Type: Spontaneous
  Country: GB (occurrence: GB)
  Receive Date: 20241209
  Receipt Date: 20241209
  Transmission Date: 20250114
  Serious: Yes (Life-Threatening, Other)
  Sender: MYLAN
  Company Number: None

PATIENT
  Sex: Female
  Weight: 132 kg

DRUGS (5)
  1. GABAPENTIN [Suspect]
     Active Substance: GABAPENTIN
     Indication: Product used for unknown indication
     Dosage: 600 MILLIGRAM, TID (600MG TDS)
     Route: 065
     Dates: start: 20220201
  2. BUSPIRONE [Suspect]
     Active Substance: BUSPIRONE HYDROCHLORIDE
     Indication: Anxiety
     Dosage: 10 MILLIGRAM, TID (10MG TDS)
     Route: 065
     Dates: start: 202405
  3. MORPHINE SULFATE [Suspect]
     Active Substance: MORPHINE SULFATE
     Indication: Thoracic outlet syndrome
     Dosage: 30 MILLIGRAM, BID
     Route: 065
     Dates: start: 20220217
  4. MORPHINE SULFATE [Suspect]
     Active Substance: MORPHINE SULFATE
     Indication: Spinal osteoarthritis
  5. IMIPRAMINE [Suspect]
     Active Substance: IMIPRAMINE
     Indication: Depressed mood
     Dosage: 75 MILLIGRAM, BID (75MG BD)
     Route: 065

REACTIONS (1)
  - Sleep apnoea syndrome [Not Recovered/Not Resolved]
